FAERS Safety Report 5772212-6 (Version None)
Quarter: 2008Q2

REPORT INFORMATION
  Report Type: 
  Country: None (occurrence: None)
  Receive Date: 20080610
  Receipt Date: 20080602
  Transmission Date: 20081010
  Serious: Yes (Death)
  Sender: FDA-Public Use
  Company Number: JPI-P-003821

PATIENT
  Age: 67 Year
  Sex: Male

DRUGS (1)
  1. XYREM [Suspect]
     Indication: SLEEP DISORDER
     Dosage: ORAL; 9 GM (4.5 GM, 2 IN 1 D), ORAL
     Route: 048

REACTIONS (1)
  - MALAISE [None]
